FAERS Safety Report 9829052 (Version 1)
Quarter: 2014Q1

REPORT INFORMATION
  Report Type: Spontaneous
  Country: US (occurrence: US)
  Receive Date: 20140118
  Receipt Date: 20140118
  Transmission Date: 20141002
  Serious: Yes (Death)
  Sender: FDA-Public Use
  Company Number: US-MERCK-1401USA005100

PATIENT
  Sex: Male

DRUGS (1)
  1. NOXAFIL [Suspect]
     Dosage: 400 MG, EVERY 12 HOURS
     Route: 048
     Dates: start: 20130717

REACTIONS (1)
  - Death [Fatal]
